FAERS Safety Report 6680298-X (Version None)
Quarter: 2010Q2

REPORT INFORMATION
  Report Type: 
  Country: None (occurrence: None)
  Receive Date: 20100408
  Receipt Date: 20100325
  Transmission Date: 20101027
  Serious: Yes (Life-Threatening)
  Sender: FDA-Public Use
  Company Number: 548378

PATIENT
  Sex: Female

DRUGS (5)
  1. PACLITAXEL [Suspect]
     Indication: OVARIAN CANCER
     Dosage: 245 MG, INTRAVENOUS
     Route: 042
     Dates: start: 20100310, end: 20100310
  2. CHLORPHENIRAMINE MALEATE [Concomitant]
  3. DEXAMETHASONE [Concomitant]
  4. (PARACETAMOL) [Concomitant]
  5. SODIUM CHLORIDE [Concomitant]

REACTIONS (5)
  - BACK PAIN [None]
  - CHEST DISCOMFORT [None]
  - DYSPNOEA [None]
  - ERYTHEMA [None]
  - HYPERSENSITIVITY [None]
